FAERS Safety Report 4726908-5 (Version None)
Quarter: 2005Q3

REPORT INFORMATION
  Report Type: 
  Country: None (occurrence: None)
  Receive Date: 20050726
  Receipt Date: 20050713
  Transmission Date: 20060218
  Serious: Yes (Other)
  Sender: FDA-Public Use
  Company Number: HQWYE223215JUL05

PATIENT
  Age: 53 Year
  Sex: Female
  Weight: 113.5 kg

DRUGS (5)
  1. PREMARIN [Suspect]
     Indication: HOT FLUSH
     Dosage: 0.3 MG DAILY
     Route: 048
     Dates: start: 19900101, end: 20030101
  2. SYNTHROID [Concomitant]
  3. DARVOCET-N 50 [Concomitant]
  4. ATIVAN [Concomitant]
  5. PROZAC [Concomitant]

REACTIONS (4)
  - BREAST NEOPLASM [None]
  - NERVOUSNESS [None]
  - PALPITATIONS [None]
  - SYSTEMIC LUPUS ERYTHEMATOSUS [None]
